FAERS Safety Report 8113856-6 (Version None)
Quarter: 2012Q1

REPORT INFORMATION
  Report Type: 
  Country: None (occurrence: None)
  Receive Date: 20120203
  Receipt Date: 20120201
  Transmission Date: 20120608
  Serious: Yes (Hospitalization)
  Sender: FDA-Public Use
  Company Number: PHHO2011US05873

PATIENT
  Sex: Male
  Weight: 108 kg

DRUGS (6)
  1. OMEPRAZOLE [Suspect]
     Indication: OSTEOARTHRITIS
     Dosage: CODE NOT BROKEN
     Dates: start: 20101202, end: 20110210
  2. NAPROXEN [Suspect]
     Indication: OSTEOARTHRITIS
     Dosage: CODE NOT BROKEN
     Dates: start: 20101202, end: 20110210
  3. ILARIS [Suspect]
     Indication: OSTEOARTHRITIS
     Dosage: CODE NOT BROKEN
     Dates: start: 20101202, end: 20110210
  4. BLINDED NO TREATMENT RECEIVED [Suspect]
     Indication: OSTEOARTHRITIS
     Dosage: CODE NOT BROKEN
     Dates: start: 20101202, end: 20110210
  5. ASPIRIN [Concomitant]
     Indication: PROPHYLAXIS
     Dosage: 81 MG, UNK
     Dates: start: 20040101, end: 20110213
  6. PLAVIX [Concomitant]
     Indication: PROPHYLAXIS
     Dosage: 75 MG, UNK
     Dates: start: 20040101, end: 20110213

REACTIONS (1)
  - EPISTAXIS [None]
